FAERS Safety Report 17355220 (Version 2)
Quarter: 2020Q1

REPORT INFORMATION
  Report Type: Spontaneous
  Country: JP (occurrence: JP)
  Receive Date: 20200131
  Receipt Date: 20200206
  Transmission Date: 20200409
  Serious: Yes (Death)
  Sender: FDA-Public Use
  Company Number: JP-009507513-2001JPN003113J

PATIENT
  Age: 94 Year
  Sex: Female

DRUGS (5)
  1. STROMECTOL [Suspect]
     Active Substance: IVERMECTIN
     Indication: ACARODERMATITIS
     Dosage: 6 MILLIGRAM, QD
     Route: 048
     Dates: start: 20191227, end: 20191227
  2. AZUCURENIN S [Concomitant]
     Active Substance: GLUTAMINE
     Dosage: UNK
     Route: 048
     Dates: end: 20200108
  3. SENNOSIDE [Concomitant]
     Active Substance: SENNOSIDES
     Dosage: UNK
     Route: 048
     Dates: end: 20200108
  4. STROMECTOL [Suspect]
     Active Substance: IVERMECTIN
     Dosage: 6 MILLIGRAM, QD
     Route: 048
     Dates: start: 20200103, end: 20200103
  5. MAGMITT [Concomitant]
     Active Substance: MAGNESIUM OXIDE
     Dosage: UNK
     Route: 048
     Dates: end: 20200108

REACTIONS (1)
  - Hepatic function abnormal [Fatal]
